FAERS Safety Report 6134608-2 (Version None)
Quarter: 2009Q1

REPORT INFORMATION
  Report Type: 
  Country: None (occurrence: None)
  Receive Date: 20090327
  Receipt Date: 20090316
  Transmission Date: 20090719
  Serious: Yes (Other)
  Sender: FDA-Public Use
  Company Number: CA-JNJFOC-20090303990

PATIENT
  Sex: Female

DRUGS (2)
  1. REMICADE [Suspect]
     Indication: CROHN'S DISEASE
     Route: 042
  2. PENICILLIN [Suspect]
     Indication: PHARYNGITIS

REACTIONS (3)
  - LOSS OF CONSCIOUSNESS [None]
  - PHARYNGITIS [None]
  - VOMITING [None]
